FAERS Safety Report 15002004 (Version 1)
Quarter: 2018Q2

REPORT INFORMATION
  Report Type: Spontaneous
  Country: US (occurrence: US)
  Receive Date: 20180612
  Receipt Date: 20180612
  Transmission Date: 20180711
  Serious: No
  Sender: FDA-Public Use
  Company Number: US-SEPTODONT-201704211

PATIENT
  Age: 54 Year
  Sex: Female

DRUGS (3)
  1. BENZOCAINE. [Concomitant]
     Active Substance: BENZOCAINE
     Route: 061
     Dates: start: 20170614, end: 20170718
  2. SEPTOCAINE AND EPINEPHRINE [Suspect]
     Active Substance: ARTICAINE HYDROCHLORIDE\EPINEPHRINE BITARTRATE
     Indication: LOCAL ANAESTHESIA
     Dosage: 1.5 CARPULES ADMINISTERED IN 2 INJECTIONS IN HEALTHY TISSUE IN JUN. 3/4 CARPULE ADMINISTERED IN JUL
     Route: 004
     Dates: start: 20170614, end: 20170718
  3. FLUOXETINE [Concomitant]
     Active Substance: FLUOXETINE HYDROCHLORIDE

REACTIONS (4)
  - Injection site pain [Recovered/Resolved]
  - Injection site ulcer [Recovered/Resolved]
  - Injection site pain [Recovered/Resolved]
  - Injection site ulcer [Recovered/Resolved]

NARRATIVE: CASE EVENT DATE: 20170615
